FAERS Safety Report 8710931 (Version 3)
Quarter: 2013Q1

REPORT INFORMATION
  Report Type: Spontaneous
  Country: JP (occurrence: JP)
  Receive Date: 20120807
  Receipt Date: 20130207
  Transmission Date: 20140127
  Serious: Yes (Other)
  Sender: FDA-Public Use
  Company Number: JP-TEVA-352229ISR

PATIENT
  Age: 34 Year
  Sex: Male
  Weight: 73 kg

DRUGS (2)
  1. TRISENOX [Suspect]
     Indication: ACUTE PROMYELOCYTIC LEUKAEMIA
     Dosage: 10 MILLIGRAM DAILY;
     Dates: start: 20120723, end: 20120726
  2. VESANOID [Concomitant]
     Dates: start: 20120608, end: 20120710

REACTIONS (3)
  - Disseminated intravascular coagulation [Unknown]
  - Pyrexia [Unknown]
  - Tubulointerstitial nephritis [Recovered/Resolved]
